FAERS Safety Report 4536338-7 (Version None)
Quarter: 2004Q4

REPORT INFORMATION
  Report Type: 
  Country: None (occurrence: None)
  Receive Date: 20041223
  Receipt Date: 20040715
  Transmission Date: 20050328
  Serious: No
  Sender: FDA-Public Use
  Company Number: US-GLAXOSMITHKLINE-A0518536A

PATIENT
  Age: 70 Year
  Sex: Female
  Weight: 85 kg

DRUGS (3)
  1. FLONASE [Suspect]
     Dosage: 2SPR PER DAY
     Route: 045
     Dates: start: 20000101, end: 20040201
  2. CLARITIN [Concomitant]
  3. SYNTHROID [Concomitant]

REACTIONS (1)
  - EPISTAXIS [None]
